FAERS Safety Report 24063924 (Version 1)
Quarter: 2024Q3

REPORT INFORMATION
  Report Type: Spontaneous
  Country: JP (occurrence: JP)
  Receive Date: 20240709
  Receipt Date: 20240709
  Transmission Date: 20241016
  Serious: Yes (Other)
  Sender: AMGEN
  Company Number: JP-KYOWAKIRIN-2024KK014087

PATIENT
  Age: 8 Decade
  Sex: Female

DRUGS (1)
  1. CINACALCET HYDROCHLORIDE [Suspect]
     Active Substance: CINACALCET HYDROCHLORIDE
     Indication: Hypercalcaemia
     Dosage: 12.5 MILLIGRAM, BID, AFTER BREAKFAST AND EVENING MEAL
     Route: 048

REACTIONS (2)
  - Parathyroid tumour [Unknown]
  - Off label use [Unknown]
